FAERS Safety Report 9849758 (Version 1)
Quarter: 2014Q1

REPORT INFORMATION
  Report Type: Spontaneous
  Country: US (occurrence: US)
  Receive Date: 20140128
  Receipt Date: 20140128
  Transmission Date: 20141002
  Serious: Yes (Other)
  Sender: FDA-Public Use
  Company Number: US-BAXTER-2014BAX002793

PATIENT
  Age: 61 Year
  Sex: Male

DRUGS (3)
  1. GAMMAGARD LIQUID [Suspect]
     Indication: ENCEPHALOPATHY
     Dates: start: 20140110, end: 20140110
  2. GAMMAGARD LIQUID [Suspect]
     Indication: OFF LABEL USE
  3. PREDNISONE [Concomitant]
     Indication: ENCEPHALOPATHY

REACTIONS (1)
  - Dermatitis [Recovering/Resolving]
